FAERS Safety Report 25418896 (Version 1)
Quarter: 2025Q2

REPORT INFORMATION
  Report Type: Spontaneous
  Country: CN (occurrence: CN)
  Receive Date: 20250610
  Receipt Date: 20250610
  Transmission Date: 20250717
  Serious: Yes (Hospitalization, Other)
  Sender: NOVARTIS
  Company Number: CN-002147023-NVSC2025CN090410

PATIENT
  Age: 72 Year
  Sex: Female

DRUGS (2)
  1. CYCLOSPORINE [Suspect]
     Active Substance: CYCLOSPORINE
     Indication: Aplastic anaemia
     Dosage: 125.000 MG, QD
     Route: 041
     Dates: start: 20250402, end: 20250402
  2. CYCLOSPORINE [Suspect]
     Active Substance: CYCLOSPORINE
     Dosage: 75.000 MG, BID
     Route: 041
     Dates: start: 20250403, end: 20250404

REACTIONS (3)
  - Arrhythmia [Recovering/Resolving]
  - Heart rate decreased [Recovering/Resolving]
  - Blood potassium increased [Unknown]

NARRATIVE: CASE EVENT DATE: 20250401
